FAERS Safety Report 20746308 (Version 1)
Quarter: 2022Q2

REPORT INFORMATION
  Report Type: Spontaneous
  Country: US (occurrence: None)
  Receive Date: 20220425
  Receipt Date: 20220425
  Transmission Date: 20220721
  Serious: No
  Sender: FDA-Public Use
  Company Number: None

PATIENT
  Age: 36 Year
  Sex: Male
  Weight: 78.75 kg

DRUGS (1)
  1. CABOTEGRAVIR [Suspect]
     Active Substance: CABOTEGRAVIR
     Indication: Prophylaxis against HIV infection
     Dosage: OTHER FREQUENCY : EVERY OTHER MONTH;?
     Route: 030
     Dates: start: 20220413

REACTIONS (4)
  - Infection [None]
  - Pain [None]
  - Back pain [None]
  - Pain [None]

NARRATIVE: CASE EVENT DATE: 20220420
